FAERS Safety Report 14794804 (Version 1)
Quarter: 2018Q2

REPORT INFORMATION
  Report Type: Spontaneous
  Country: JP (occurrence: JP)
  Receive Date: 20180423
  Receipt Date: 20180423
  Transmission Date: 20180711
  Serious: Yes (Other)
  Sender: FDA-Public Use
  Company Number: JP-BAYER-2018-077911

PATIENT
  Sex: Male

DRUGS (2)
  1. ALBUMIN [Concomitant]
     Active Substance: ALBUMIN HUMAN
  2. NEXAVAR [Suspect]
     Active Substance: SORAFENIB
     Indication: HEPATOCELLULAR CARCINOMA
     Route: 048

REACTIONS (3)
  - Ascites [None]
  - Renal impairment [None]
  - Metastasis [None]
